FAERS Safety Report 9685184 (Version 1)
Quarter: 2013Q4

REPORT INFORMATION
  Report Type: Spontaneous
  Country: US (occurrence: None)
  Receive Date: 20131112
  Receipt Date: 20131112
  Transmission Date: 20140711
  Serious: Yes (Other)
  Sender: FDA-Public Use
  Company Number: None

PATIENT
  Age: 51 Year
  Sex: Female
  Weight: 79.38 kg

DRUGS (1)
  1. CREST PRO HEALTH MOUTHWASH 24 HOUR PROTECTION -L-22635395RD [Suspect]
     Indication: GINGIVITIS
     Dates: start: 20131104, end: 20131111

REACTIONS (2)
  - Ageusia [None]
  - Gingival inflammation [None]
